FAERS Safety Report 6622783-2 (Version None)
Quarter: 2010Q1

REPORT INFORMATION
  Report Type: 
  Country: None (occurrence: None)
  Receive Date: 20100310
  Receipt Date: 20100301
  Transmission Date: 20100710
  Serious: Yes (Hospitalization)
  Sender: FDA-Public Use
  Company Number: JP-JNJFOC-20091005268

PATIENT
  Sex: Male
  Weight: 49 kg

DRUGS (9)
  1. REMICADE [Suspect]
     Indication: CROHN'S DISEASE
     Dosage: TOTAL OF 3 INFUSIONS
     Route: 042
  2. REMICADE [Suspect]
     Route: 042
  3. REMICADE [Suspect]
     Route: 042
  4. AZANIN [Suspect]
     Indication: CROHN'S DISEASE
     Route: 048
  5. SALAZOPYRIN [Concomitant]
     Indication: CROHN'S DISEASE
     Route: 048
  6. CIPROFLOXACIN [Concomitant]
     Indication: CROHN'S DISEASE
     Route: 048
  7. ELENTAL [Concomitant]
     Indication: CROHN'S DISEASE
     Route: 048
  8. METHYCOBAL [Concomitant]
     Indication: VITAMIN B12 DEFICIENCY
     Route: 048
  9. FERO-GRADUMET [Concomitant]
     Indication: IRON DEFICIENCY ANAEMIA
     Route: 048

REACTIONS (2)
  - BRONCHOPULMONARY ASPERGILLOSIS [None]
  - CROHN'S DISEASE [None]
